FAERS Safety Report 8162490-0 (Version None)
Quarter: 2012Q1

REPORT INFORMATION
  Report Type: 
  Country: None (occurrence: None)
  Receive Date: 20120224
  Receipt Date: 20120224
  Transmission Date: 20120608
  Serious: Yes (Hospitalization)
  Sender: FDA-Public Use
  Company Number: None

PATIENT
  Sex: Male

DRUGS (1)
  1. LISINOPRIL [Suspect]
     Dosage: 80MG
     Route: 048

REACTIONS (2)
  - ANGIOEDEMA [None]
  - RESPIRATORY DISTRESS [None]
